FAERS Safety Report 12786833 (Version 1)
Quarter: 2016Q3

REPORT INFORMATION
  Report Type: Spontaneous
  Country: US (occurrence: US)
  Receive Date: 20160928
  Receipt Date: 20160928
  Transmission Date: 20161109
  Serious: No
  Sender: FDA-Public Use
  Company Number: US-MYLANLABS-2016M1024809

PATIENT
  Age: 11 Year
  Sex: Female
  Weight: 41.27 kg

DRUGS (1)
  1. GUANFACINE HYDROCHLORIDE EXTENDED-RELEASE TABLETS [Suspect]
     Active Substance: GUANFACINE HYDROCHLORIDE
     Indication: ATTENTION DEFICIT/HYPERACTIVITY DISORDER
     Dosage: 3 MG, QD
     Route: 048
     Dates: start: 201605, end: 201606

REACTIONS (2)
  - Headache [Recovered/Resolved]
  - Irritability [Recovered/Resolved]

NARRATIVE: CASE EVENT DATE: 201605
